FAERS Safety Report 11522029 (Version 4)
Quarter: 2015Q4

REPORT INFORMATION
  Report Type: Spontaneous
  Country: JP (occurrence: None)
  Receive Date: 20150918
  Receipt Date: 20151019
  Transmission Date: 20160304
  Serious: Yes (Death, Hospitalization, Other)
  Sender: FDA-Public Use
  Company Number: JP-MDT-ADR-2015-01809

PATIENT
  Sex: Male
  Weight: 29 kg

DRUGS (1)
  1. GABALON INTRATHECAL (0.2%) [Suspect]
     Active Substance: BACLOFEN
     Dosage: 150 MCG/DAY

REACTIONS (1)
  - Chronic respiratory failure [None]
